FAERS Safety Report 19083689 (Version 5)
Quarter: 2021Q2

REPORT INFORMATION
  Report Type: Spontaneous
  Country: JP (occurrence: JP)
  Receive Date: 20210401
  Receipt Date: 20210630
  Transmission Date: 20210717
  Serious: Yes (Death, Hospitalization)
  Sender: FDA-Public Use
  Company Number: JP-EISAI MEDICAL RESEARCH-EC-2021-090251

PATIENT
  Age: 56 Year
  Sex: Male
  Weight: 80 kg

DRUGS (22)
  1. PERAMPANEL [Suspect]
     Active Substance: PERAMPANEL
     Route: 048
     Dates: start: 2019
  2. PROPOFOL. [Suspect]
     Active Substance: PROPOFOL
     Route: 065
  3. PHENOBARBITAL. [Concomitant]
     Active Substance: PHENOBARBITAL
     Indication: STATUS EPILEPTICUS
  4. PHENYTOIN. [Concomitant]
     Active Substance: PHENYTOIN
     Indication: STATUS EPILEPTICUS
     Route: 065
  5. LACOSAMIDE. [Suspect]
     Active Substance: LACOSAMIDE
     Route: 048
     Dates: start: 2019
  6. LEVETIRACETAM. [Suspect]
     Active Substance: LEVETIRACETAM
     Route: 048
     Dates: start: 2019
  7. FOSPHENYTOIN SODIUM HYDRATE [Suspect]
     Active Substance: FOSPHENYTOIN SODIUM HEPTAHYDRATE
     Indication: STATUS EPILEPTICUS
     Route: 065
     Dates: start: 201905, end: 2019
  8. FOSPHENYTOIN SODIUM HYDRATE [Suspect]
     Active Substance: FOSPHENYTOIN SODIUM HEPTAHYDRATE
     Route: 065
     Dates: start: 2019
  9. THIOPENTAL SODIUM. [Suspect]
     Active Substance: THIOPENTAL SODIUM
     Route: 065
  10. PROPOFOL. [Suspect]
     Active Substance: PROPOFOL
     Route: 065
     Dates: start: 2019
  11. PHENOBARBITAL. [Concomitant]
     Active Substance: PHENOBARBITAL
     Route: 065
  12. PERAMPANEL [Suspect]
     Active Substance: PERAMPANEL
     Indication: STATUS EPILEPTICUS
     Route: 048
     Dates: start: 201905, end: 2019
  13. LACOSAMIDE. [Suspect]
     Active Substance: LACOSAMIDE
     Route: 048
     Dates: start: 2019, end: 2019
  14. PHENYTOIN. [Concomitant]
     Active Substance: PHENYTOIN
  15. SODIUM VALPROATE [Concomitant]
     Active Substance: VALPROATE SODIUM
     Indication: STATUS EPILEPTICUS
     Route: 048
  16. LACOSAMIDE. [Suspect]
     Active Substance: LACOSAMIDE
     Indication: STATUS EPILEPTICUS
     Route: 048
     Dates: start: 201905, end: 2019
  17. THIOPENTAL SODIUM. [Suspect]
     Active Substance: THIOPENTAL SODIUM
     Indication: STATUS EPILEPTICUS
     Route: 065
     Dates: start: 201905, end: 2019
  18. PERAMPANEL [Suspect]
     Active Substance: PERAMPANEL
     Route: 048
  19. LEVETIRACETAM. [Suspect]
     Active Substance: LEVETIRACETAM
     Indication: STATUS EPILEPTICUS
     Route: 048
     Dates: start: 201905, end: 2019
  20. PROPOFOL. [Suspect]
     Active Substance: PROPOFOL
     Indication: STATUS EPILEPTICUS
     Route: 065
     Dates: start: 201905, end: 2019
  21. THIOPENTAL SODIUM. [Suspect]
     Active Substance: THIOPENTAL SODIUM
     Route: 065
     Dates: start: 2019
  22. SODIUM VALPROATE [Concomitant]
     Active Substance: VALPROATE SODIUM
     Route: 048

REACTIONS (2)
  - Septic shock [Fatal]
  - Nephropathy toxic [Recovered/Resolved]

NARRATIVE: CASE EVENT DATE: 20190602
